FAERS Safety Report 22967815 (Version 2)
Quarter: 2023Q4

REPORT INFORMATION
  Report Type: Spontaneous
  Country: US (occurrence: US)
  Receive Date: 20230921
  Receipt Date: 20231005
  Transmission Date: 20240110
  Serious: Yes (Death, Other)
  Sender: FDA-Public Use
  Company Number: US-INCYTE CORPORATION-2023IN009772

PATIENT

DRUGS (1)
  1. JAKAFI [Suspect]
     Active Substance: RUXOLITINIB
     Dosage: 5 MILLIGRAM, BID
     Route: 048

REACTIONS (2)
  - Acute myeloid leukaemia [Fatal]
  - Myelofibrosis [Unknown]

NARRATIVE: CASE EVENT DATE: 20230501
